FAERS Safety Report 11520203 (Version 2)
Quarter: 2015Q4

REPORT INFORMATION
  Report Type: Report from Study
  Country: US (occurrence: US)
  Receive Date: 20150918
  Receipt Date: 20151009
  Transmission Date: 20160304
  Serious: Yes (Hospitalization, Other)
  Sender: FDA-Public Use
  Company Number: US-BAYER-2015-068091

PATIENT
  Age: 56 Year
  Sex: Female
  Weight: 83 kg

DRUGS (35)
  1. NEXAVAR [Suspect]
     Active Substance: SORAFENIB
     Indication: RENAL CANCER METASTATIC
     Dosage: 400 MG, BID
     Route: 048
     Dates: start: 201507, end: 20150729
  2. ONDANSETRON [Concomitant]
     Active Substance: ONDANSETRON
  3. ASPIRIN. [Concomitant]
     Active Substance: ASPIRIN
  4. ZOMETA [Concomitant]
     Active Substance: ZOLEDRONIC ACID
  5. LEVOTHYROXIN [Concomitant]
     Active Substance: LEVOTHYROXINE
  6. PANTOPRAZOLE [Concomitant]
     Active Substance: PANTOPRAZOLE SODIUM
  7. SIMVASTATIN. [Concomitant]
     Active Substance: SIMVASTATIN
  8. IMODIUM [Concomitant]
     Active Substance: LOPERAMIDE HYDROCHLORIDE
  9. CARVEDILOL. [Concomitant]
     Active Substance: CARVEDILOL
  10. CLARITIN [Concomitant]
     Active Substance: LORATADINE
  11. METFORMIN [Concomitant]
     Active Substance: METFORMIN HYDROCHLORIDE
  12. TRIAMTERENE AND HYDROCHLOROTHIAZIDE [Concomitant]
     Active Substance: HYDROCHLOROTHIAZIDE\TRIAMTERENE
  13. ALBUTEROL SULFATE. [Concomitant]
     Active Substance: ALBUTEROL SULFATE
  14. ECOTRIN [Concomitant]
     Active Substance: ASPIRIN
  15. VITAMIN D [Concomitant]
     Active Substance: CHOLECALCIFEROL
  16. CLARITIN [Concomitant]
     Active Substance: LORATADINE
  17. REGLAN [Concomitant]
     Active Substance: METOCLOPRAMIDE HYDROCHLORIDE
  18. POTASSIUM CHLORIDE. [Concomitant]
     Active Substance: POTASSIUM CHLORIDE
  19. TIZANIDINE. [Concomitant]
     Active Substance: TIZANIDINE
  20. NEXAVAR [Suspect]
     Active Substance: SORAFENIB
     Indication: RENAL CANCER METASTATIC
     Dosage: 400 MG, BID
     Route: 048
     Dates: start: 20150217, end: 201507
  21. MAGNESIUM [Concomitant]
     Active Substance: MAGNESIUM
  22. CARVEDILOL. [Concomitant]
     Active Substance: CARVEDILOL
  23. SODIUM BICARBONATE. [Concomitant]
     Active Substance: SODIUM BICARBONATE
  24. LEVOTHYROXINE. [Concomitant]
     Active Substance: LEVOTHYROXINE
  25. PROTONIX [Concomitant]
     Active Substance: PANTOPRAZOLE SODIUM
  26. CALCIUM [Concomitant]
     Active Substance: CALCIUM
  27. LORATADINE. [Concomitant]
     Active Substance: LORATADINE
  28. TRIAMTEREN [Concomitant]
     Active Substance: TRIAMTERENE
  29. REGLAN [Concomitant]
     Active Substance: METOCLOPRAMIDE HYDROCHLORIDE
  30. POTASSIUM [Concomitant]
     Active Substance: POTASSIUM
  31. SIMVASTATIN. [Concomitant]
     Active Substance: SIMVASTATIN
  32. SODIUM BICARBONATE. [Concomitant]
     Active Substance: SODIUM BICARBONATE
  33. FERROUS SULFATE [Concomitant]
     Active Substance: FERROUS SULFATE\FERROUS SULFATE, DRIED
  34. METFORMIN [Concomitant]
     Active Substance: METFORMIN HYDROCHLORIDE
  35. ACETAMINOPHEN W/OXYCODONE [Concomitant]
     Active Substance: ACETAMINOPHEN\OXYCODONE HYDROCHLORIDE

REACTIONS (19)
  - IgA nephropathy [None]
  - Pain in extremity [Unknown]
  - Renal failure [Unknown]
  - Anaemia [None]
  - Hair colour changes [None]
  - Folliculitis [None]
  - Diarrhoea [Recovered/Resolved]
  - Renal tubular necrosis [None]
  - Oedema peripheral [None]
  - Asthenia [None]
  - Nephrotic syndrome [None]
  - Dyspnoea exertional [None]
  - Nasal congestion [None]
  - Fatigue [None]
  - Autoimmune nephritis [None]
  - Vomiting [None]
  - Renal injury [None]
  - Nephrogenic anaemia [None]
  - Nausea [None]

NARRATIVE: CASE EVENT DATE: 2015
